FAERS Safety Report 6307634-8 (Version None)
Quarter: 2009Q3

REPORT INFORMATION
  Report Type: 
  Country: None (occurrence: None)
  Receive Date: 20090811
  Receipt Date: 20090804
  Transmission Date: 20100115
  Serious: No
  Sender: FDA-Public Use
  Company Number: SPI200900251

PATIENT
  Sex: Female

DRUGS (1)
  1. AMITIZA [Suspect]
     Indication: CONSTIPATION
     Dosage: 24 MCG, BID, ORAL ; 8 MCG, BID, ORAL ; 8 MCG, QD, ORAL
     Route: 048

REACTIONS (2)
  - DYSPNOEA [None]
  - NAUSEA [None]
